FAERS Safety Report 5147247-7 (Version None)
Quarter: 2006Q4

REPORT INFORMATION
  Report Type: 
  Country: None (occurrence: None)
  Receive Date: 20061103
  Receipt Date: 20060913
  Transmission Date: 20070319
  Serious: Yes (Hospitalization, Other)
  Sender: FDA-Public Use
  Company Number: 2006116623

PATIENT
  Age: 61 Year
  Sex: Male

DRUGS (4)
  1. BEXTRA [Suspect]
     Dosage: 20 MG (20 MG, 1 IN 1 D)
     Dates: start: 20020101
  2. DIABETA [Concomitant]
  3. NORVASC [Concomitant]
  4. REGLAN [Concomitant]

REACTIONS (26)
  - ABDOMINAL DISTENSION [None]
  - ARTERIOSCLEROSIS CORONARY ARTERY [None]
  - ATRIAL FIBRILLATION [None]
  - BACK PAIN [None]
  - CARDIAC FAILURE CONGESTIVE [None]
  - CARDIOMEGALY [None]
  - CHEST PAIN [None]
  - CORONARY ARTERY OCCLUSION [None]
  - DRY SKIN [None]
  - ECZEMA [None]
  - FLATULENCE [None]
  - GAIT DISTURBANCE [None]
  - GASTROOESOPHAGEAL REFLUX DISEASE [None]
  - HYPERSENSITIVITY [None]
  - HYPOAESTHESIA [None]
  - ISCHAEMIC CARDIOMYOPATHY [None]
  - NECK PAIN [None]
  - PARAESTHESIA [None]
  - PULMONARY HYPERTENSION [None]
  - RADICULOPATHY [None]
  - SCIATICA [None]
  - SINUS TACHYCARDIA [None]
  - SINUSITIS [None]
  - STOMACH DISCOMFORT [None]
  - URINARY TRACT INFECTION [None]
  - VENTRICULAR HYPOKINESIA [None]
